FAERS Safety Report 10066698 (Version 1)
Quarter: 2014Q2

REPORT INFORMATION
  Report Type: Spontaneous
  Country: US (occurrence: None)
  Receive Date: 20140401
  Receipt Date: 20140401
  Transmission Date: 20141212
  Serious: Yes (Hospitalization)
  Sender: FDA-Public Use
  Company Number: PHEH2013US023624

PATIENT
  Age: 92 Year
  Sex: Male

DRUGS (8)
  1. EXELON PATCH [Suspect]
     Route: 062
     Dates: end: 20131023
  2. EXELON [Suspect]
     Route: 048
     Dates: start: 20131024, end: 20131025
  3. REMERON [Concomitant]
  4. FLOMEX [Concomitant]
  5. LASIX (FUROSEMIDE) [Concomitant]
  6. CARDIZEM CD [Concomitant]
  7. MVI [Concomitant]
  8. CALCIUM (CALCIUM) [Concomitant]

REACTIONS (4)
  - Dyspnoea [None]
  - Heart rate decreased [None]
  - Vomiting [None]
  - Tremor [None]
